FAERS Safety Report 16958738 (Version 4)
Quarter: 2019Q4

REPORT INFORMATION
  Report Type: Report from Study
  Country: None (occurrence: US)
  Receive Date: 20191024
  Receipt Date: 20191223
  Transmission Date: 20200122
  Serious: Yes (Hospitalization)
  Sender: FDA-Public Use
  Company Number: US-ABBVIE-19P-163-2973009-00

PATIENT
  Age: 63 Year
  Sex: Male
  Weight: 80.81 kg

DRUGS (9)
  1. ZOLOFT [Concomitant]
     Active Substance: SERTRALINE HYDROCHLORIDE
     Indication: ANXIETY
     Route: 048
     Dates: start: 20180226
  2. DUOPA [Suspect]
     Active Substance: CARBIDOPA\LEVODOPA
     Indication: PARKINSON^S DISEASE
     Dosage: TITRATION: DAY 1 DOSING:  MD:14.5ML; CD:6.5ML/HR; ED:2.0ML 2 PER DAY, 16 HR
     Route: 050
     Dates: start: 20170614, end: 20170615
  3. TYLENOL [Concomitant]
     Active Substance: ACETAMINOPHEN
     Indication: HEADACHE
     Route: 048
     Dates: start: 20160816
  4. CARBIDOPA W/LEVODOPA CR [Concomitant]
     Indication: PARKINSON^S DISEASE
     Route: 048
     Dates: start: 20170614
  5. DUOPA [Suspect]
     Active Substance: CARBIDOPA\LEVODOPA
     Route: 050
     Dates: start: 20170615
  6. MOTRIN [Concomitant]
     Active Substance: IBUPROFEN
     Indication: PAIN
     Route: 048
     Dates: start: 20130425
  7. CARBIDOPA LEVODOPA [Concomitant]
     Active Substance: CARBIDOPA\LEVODOPA
     Indication: PARKINSON^S DISEASE
     Route: 048
     Dates: start: 20161222
  8. HYDROCORTISONE. [Concomitant]
     Active Substance: HYDROCORTISONE
     Indication: FUNGAL INFECTION
     Route: 061
     Dates: start: 20190406
  9. CARBIDOPA W/LEVODOPA CR [Concomitant]
     Route: 048
     Dates: start: 20170216, end: 20170613

REACTIONS (3)
  - Food poisoning [Not Recovered/Not Resolved]
  - Diarrhoea [Not Recovered/Not Resolved]
  - Gastrooesophageal reflux disease [Not Recovered/Not Resolved]

NARRATIVE: CASE EVENT DATE: 20191014
